FAERS Safety Report 4715432-1 (Version None)
Quarter: 2005Q3

REPORT INFORMATION
  Report Type: 
  Country: None (occurrence: None)
  Receive Date: 20050713
  Receipt Date: 20050630
  Transmission Date: 20060218
  Serious: Yes (Other)
  Sender: FDA-Public Use
  Company Number: 2005095373

PATIENT
  Sex: Female
  Weight: 58.514 kg

DRUGS (1)
  1. DILANTIN [Suspect]
     Indication: CONVULSION
     Dosage: ORAL
     Route: 048

REACTIONS (4)
  - CARCINOEMBRYONIC ANTIGEN INCREASED [None]
  - RENAL MASS [None]
  - RHINORRHOEA [None]
  - SNEEZING [None]
